FAERS Safety Report 5271052-4 (Version None)
Quarter: 2007Q1

REPORT INFORMATION
  Report Type: 
  Country: None (occurrence: None)
  Receive Date: 20070315
  Receipt Date: 20070228
  Transmission Date: 20070707
  Serious: Yes (Other)
  Sender: FDA-Public Use
  Company Number: 2007RR-06114

PATIENT
  Age: 51 Year
  Sex: Male

DRUGS (10)
  1. ZIDOVUDINE [Suspect]
  2. LAMIVUDINE(LAMIVUDINE) UNKNOWN [Suspect]
  3. FOSAMPRENAVIR(FOSAMPRENAVIR) [Suspect]
  4. RITONAVIR(RITONAVIR) [Suspect]
  5. ISONIAZID [Concomitant]
  6. RIFAMPICIN [Concomitant]
  7. PYRAZINAMIDE [Concomitant]
  8. ETHAMBUTOL HYDROCHLORIDE [Concomitant]
  9. MOXIFLOXACIN HCL [Concomitant]
  10. PREDNISOLONE [Concomitant]

REACTIONS (11)
  - CHOLESTASIS [None]
  - DISSEMINATED TUBERCULOSIS [None]
  - ERYTHEMA [None]
  - HAEMATURIA [None]
  - IMMUNE RECONSTITUTION SYNDROME [None]
  - LEUKOCYTURIA [None]
  - LYMPHADENOPATHY [None]
  - NEPHRITIS INTERSTITIAL [None]
  - PROTEINURIA [None]
  - SKIN LESION [None]
  - SPLENOMEGALY [None]
